FAERS Safety Report 7902453-0 (Version None)
Quarter: 2011Q4

REPORT INFORMATION
  Report Type: 
  Country: None (occurrence: None)
  Receive Date: 20111108
  Receipt Date: 20111101
  Transmission Date: 20120403
  Serious: Yes (Hospitalization)
  Sender: FDA-Public Use
  Company Number: US-PFIZER INC-2011268498

PATIENT
  Sex: Male
  Weight: 73.923 kg

DRUGS (16)
  1. IBUPROFEN [Concomitant]
     Dosage: UNK
  2. PALMAZ GENESIS [Suspect]
     Dosage: UNK
  3. LEVOTHYROXINE [Concomitant]
     Dosage: UNK
  4. PROZAC [Concomitant]
     Dosage: UNK
  5. ACETYLSALICYLIC ACID [Concomitant]
     Dosage: UNK
  6. PROTONIX [Concomitant]
     Dosage: UNK
  7. ATACAND [Suspect]
     Indication: HYPERTENSION
     Dosage: 32 MG, 1X/DAY
     Dates: start: 20060509
  8. INSULIN [Concomitant]
     Dosage: UNK
  9. AMLODIPINE AND ATORVASTATIN [Suspect]
     Indication: HYPERLIPIDAEMIA
     Dosage: [AMLODIPINE 5MG/ ATORVASTATIN 40MG], 1X/DAY
     Dates: start: 20081001
  10. ANGIOGUARD RX SHORT TIP [Suspect]
     Dosage: UNK
  11. METFORMIN [Concomitant]
     Dosage: UNK
  12. FISH OIL [Concomitant]
     Dosage: UNK
  13. HYDROCHLOROTHIAZIDE [Concomitant]
     Dosage: UNK
  14. MULTI-VITAMINS [Concomitant]
     Dosage: UNK
  15. ENALAPRIL [Concomitant]
     Dosage: UNK
  16. BISOPROLOL [Concomitant]
     Dosage: UNK

REACTIONS (2)
  - FALL [None]
  - FATIGUE [None]
